FAERS Safety Report 14424307 (Version 1)
Quarter: 2018Q1

REPORT INFORMATION
  Report Type: Spontaneous
  Country: US (occurrence: US)
  Receive Date: 20180122
  Receipt Date: 20180122
  Transmission Date: 20180509
  Serious: Yes (Death)
  Sender: FDA-Public Use
  Company Number: None

PATIENT
  Age: 68 Year
  Sex: Male
  Weight: 145.2 kg

DRUGS (12)
  1. DOXYCYCLINE HYCLATE. [Concomitant]
     Active Substance: DOXYCYCLINE HYCLATE
  2. SPIRONOLACTONE (ALDACTONE) [Concomitant]
  3. TIOTROPIUM BROMIDE (SPIRIVA RESPIMAT) [Concomitant]
  4. FLUTICASONE-SALMETEROL (ADVAIR DISKUS) [Concomitant]
  5. COUMADIN [Concomitant]
     Active Substance: WARFARIN SODIUM
  6. EFFEXOR XR [Concomitant]
     Active Substance: VENLAFAXINE HYDROCHLORIDE
  7. LISINOPRIL (ZESTRIL, PRINIVIL) [Concomitant]
  8. MAGNESIUM OXIDE (MAG-OX) [Concomitant]
  9. TORSEMIDE (DEMADEX) [Concomitant]
  10. SIMVASTATIN. [Concomitant]
     Active Substance: SIMVASTATIN
  11. NIVOLUMAB [Suspect]
     Active Substance: NIVOLUMAB
     Indication: RENAL CELL CARCINOMA
     Route: 042
     Dates: start: 20171009, end: 20171218
  12. CARVEDILOL (COREG) [Concomitant]

REACTIONS (2)
  - Disease progression [None]
  - Therapy cessation [None]

NARRATIVE: CASE EVENT DATE: 20180122
